FAERS Safety Report 10388731 (Version 1)
Quarter: 2014Q1

REPORT INFORMATION
  Report Type: Spontaneous
  Country: US (occurrence: None)
  Receive Date: 20140306
  Receipt Date: 20140306
  Transmission Date: 20141002
  Serious: Yes (Other)
  Sender: FDA-Public Use
  Company Number: 163-21880-13124103

PATIENT
  Age: 69 Year
  Sex: Female
  Weight: 66.23 kg

DRUGS (10)
  1. REVLIMID (LENALIDOMIDE) (10 MILLIGRAM, CAPSULES) [Suspect]
     Dosage: 21 IN 21 D,PO
     Route: 048
     Dates: start: 201211
  2. ASPIRIN(ACETYLSALICYLIC ACID)(UNKNOWN) [Concomitant]
  3. VITAMIN B 6(PYRIDOXINE HYDROCHLORIDE)(UNKNOWN) [Concomitant]
  4. FLEXERIL(CYCLOBENZAPRINE HYDROCHLORIDE)(UNKNOWN; [Concomitant]
  5. IMODIUM AD(LOPERAMIDE HYDROCHLORIDE)(UNKNOWN) [Concomitant]
  6. MIRALAX(MACROGOL)(UNKNOWN)? [Concomitant]
  7. NEURONTIN(GABAPENTIN)(UNKNOWN)? [Concomitant]
  8. PRILOSEC(OMEPRAZOLE)(UNKNOWN) [Concomitant]
  9. ZOFRAN(ONDANSETRON HYDROCHLORIDE)(UNKNOWN) [Concomitant]
  10. TYLENOL(PARACETAMOL)(UNKNOWN) [Concomitant]

REACTIONS (1)
  - Neutropenia [None]
